FAERS Safety Report 21091235 (Version 1)
Quarter: 2022Q3

REPORT INFORMATION
  Report Type: Other
  Country: MY (occurrence: None)
  Receive Date: 20220716
  Receipt Date: 20220716
  Transmission Date: 20221027
  Serious: Yes (Death)
  Sender: FDA-Public Use
  Company Number: MY-ROCHE-3138928

PATIENT

DRUGS (2)
  1. TENECTEPLASE [Suspect]
     Active Substance: TENECTEPLASE
     Indication: Acute myocardial infarction
     Route: 065
  2. FONDAPARINUX [Concomitant]
     Active Substance: FONDAPARINUX

REACTIONS (1)
  - Ischaemic stroke [Fatal]
